FAERS Safety Report 13233355 (Version 10)
Quarter: 2019Q4

REPORT INFORMATION
  Report Type: Report from Study
  Country: GB (occurrence: GB)
  Receive Date: 20170215
  Receipt Date: 20191121
  Transmission Date: 20200122
  Serious: Yes (Death, Hospitalization, Other)
  Sender: FDA-Public Use
  Company Number: GB-TEVA-738229ACC

PATIENT
  Age: 85 Year
  Sex: Male
  Weight: 70 kg

DRUGS (10)
  1. CHLORPHENIRAMINE                   /00072501/ [Concomitant]
     Active Substance: CHLORPHENIRAMINE
     Indication: CHRONIC LYMPHOCYTIC LEUKAEMIA
     Dosage: 10 MG, MONTHLY (PER PROTOCOL)
     Route: 041
     Dates: start: 20160920, end: 20170119
  2. METOCLOPRAMIDE. [Concomitant]
     Active Substance: METOCLOPRAMIDE
     Indication: CHRONIC LYMPHOCYTIC LEUKAEMIA
     Dosage: 800 MG, MONTHLY (PER PROTOCOL)
     Route: 041
     Dates: start: 20160920
  3. BENDAMUSTINE HYDROCHLORIDE. [Suspect]
     Active Substance: BENDAMUSTINE HYDROCHLORIDE
     Indication: CHRONIC LYMPHOCYTIC LEUKAEMIA
     Dosage: 130 MG, CYCLIC (EVERY MONTH, PER PROTOCOL)
     Route: 041
     Dates: start: 20160920, end: 20170120
  4. HYDROCORTISONE. [Concomitant]
     Active Substance: HYDROCORTISONE
     Indication: CHRONIC LYMPHOCYTIC LEUKAEMIA
     Dosage: 100 MG, MONTHLY (PER PROTOCOL)
     Route: 041
     Dates: start: 20160920, end: 20170119
  5. ALLOPURINOL. [Concomitant]
     Active Substance: ALLOPURINOL
     Indication: CHRONIC LYMPHOCYTIC LEUKAEMIA
     Route: 048
     Dates: start: 20160922, end: 20170119
  6. G-CSF [Concomitant]
     Active Substance: GRANULOCYTE COLONY-STIMULATING FACTOR NOS
     Indication: CHRONIC LYMPHOCYTIC LEUKAEMIA
     Dosage: 300 MG, MONTHLY PER PROTOCOL
     Route: 058
     Dates: start: 20160920
  7. ACICLOVIR [Concomitant]
     Active Substance: ACYCLOVIR
     Indication: CHRONIC LYMPHOCYTIC LEUKAEMIA
     Dosage: 400 MG, MONTHLY (PER PROTOCOL)
     Route: 048
     Dates: start: 20160920
  8. OFATUMUMAB [Suspect]
     Active Substance: OFATUMUMAB
     Indication: CHRONIC LYMPHOCYTIC LEUKAEMIA
     Dosage: 1000 MG, MONTHLY (PER PROTOCOL)
     Route: 041
     Dates: start: 20160920, end: 20170119
  9. PARACETAMOL [Concomitant]
     Active Substance: ACETAMINOPHEN
     Indication: CHRONIC LYMPHOCYTIC LEUKAEMIA
     Dosage: 1 G, MONTHLY (PER PROTOCOL)
     Route: 048
     Dates: start: 20160920, end: 20170119
  10. COTRIMOXAZOLE [Concomitant]
     Active Substance: SULFAMETHOXAZOLE\TRIMETHOPRIM
     Indication: CHRONIC LYMPHOCYTIC LEUKAEMIA
     Dosage: 480 MG, MONTHLY (PER PROTOCOL)
     Route: 048
     Dates: start: 20160920

REACTIONS (6)
  - Neutropenic sepsis [Fatal]
  - Diarrhoea [Recovered/Resolved with Sequelae]
  - Dementia Alzheimer^s type [Fatal]
  - Decreased appetite [Recovered/Resolved with Sequelae]
  - Lethargy [Recovered/Resolved with Sequelae]
  - Productive cough [Recovered/Resolved with Sequelae]

NARRATIVE: CASE EVENT DATE: 20170127
